FAERS Safety Report 24294700 (Version 1)
Quarter: 2024Q3

REPORT INFORMATION
  Report Type: Spontaneous
  Country: CA (occurrence: CA)
  Receive Date: 20240906
  Receipt Date: 20240906
  Transmission Date: 20241016
  Serious: Yes (Hospitalization, Other)
  Sender: MERCK
  Company Number: CA-009507513-2312CAN002165

PATIENT
  Age: 70 Year
  Sex: Male
  Weight: 76 kg

DRUGS (13)
  1. KEYTRUDA [Suspect]
     Active Substance: PEMBROLIZUMAB
     Indication: Squamous cell carcinoma of head and neck
     Dosage: 200 MILLIGRAM, UNK
     Route: 042
     Dates: start: 20231019, end: 20231019
  2. MORPHINE SULFATE [Concomitant]
     Active Substance: MORPHINE SULFATE
     Indication: Back pain
     Dosage: 5 MILLIGRAM, PRN
     Route: 065
     Dates: start: 20230914
  3. MORPHINE SULFATE [Concomitant]
     Active Substance: MORPHINE SULFATE
     Indication: Arthralgia
  4. METOCLOPRAMIDE [Concomitant]
     Active Substance: METOCLOPRAMIDE
     Dosage: 10 MILLIGRAM, PRN
     Route: 065
     Dates: start: 20230922
  5. SIMVASTATIN [Concomitant]
     Active Substance: SIMVASTATIN
     Indication: Hyperlipidaemia
     Dosage: 10 MILLIGRAM, QD
     Route: 065
     Dates: start: 202108
  6. PANTOPRAZOLE SODIUM [Concomitant]
     Active Substance: PANTOPRAZOLE SODIUM
     Indication: Dyspepsia
     Dosage: 40 MILLIGRAM, PRN
     Route: 065
     Dates: start: 201512
  7. ZOPICLONE [Concomitant]
     Active Substance: ZOPICLONE
     Indication: Insomnia
     Dosage: 3.15 MILLIGRAM, PRN
     Route: 065
     Dates: start: 201905
  8. SYNTHROID [Concomitant]
     Active Substance: LEVOTHYROXINE SODIUM
     Indication: Hypothyroidism
     Dosage: 15 MICROGRAM, QD
     Route: 065
     Dates: start: 2008
  9. ACETAMINOPHEN [Concomitant]
     Active Substance: ACETAMINOPHEN
     Indication: Back pain
     Dosage: 500 MILLIGRAM PRN
     Route: 065
     Dates: start: 20230921
  10. ACETAMINOPHEN [Concomitant]
     Active Substance: ACETAMINOPHEN
     Indication: Arthralgia
  11. ROBAXACET [Concomitant]
     Active Substance: ACETAMINOPHEN\METHOCARBAMOL
     Indication: Back pain
     Dosage: 460-325 MG/TAB; 1-2 TABS, AS NECESSARY , PRN
     Route: 065
     Dates: start: 20230921
  12. ROBAXACET [Concomitant]
     Active Substance: ACETAMINOPHEN\METHOCARBAMOL
     Indication: Arthralgia
  13. ASPIRIN [Concomitant]
     Active Substance: ASPIRIN
     Indication: Cerebrovascular accident prophylaxis
     Dosage: 81 MILLIGRAM, QD
     Route: 065
     Dates: start: 20231013

REACTIONS (4)
  - Back pain [Not Recovered/Not Resolved]
  - Pneumonia [Unknown]
  - Malignant neoplasm progression [Unknown]
  - Red blood cell transfusion [Unknown]

NARRATIVE: CASE EVENT DATE: 20230101
